FAERS Safety Report 6316974-8 (Version None)
Quarter: 2009Q3

REPORT INFORMATION
  Report Type: 
  Country: None (occurrence: None)
  Receive Date: 20090820
  Receipt Date: 20090806
  Transmission Date: 20100115
  Serious: Yes (Hospitalization)
  Sender: FDA-Public Use
  Company Number: GB-MYLANLABS-2009S1014132

PATIENT
  Age: 77 Year
  Sex: Female

DRUGS (7)
  1. MIRTAZAPINE [Suspect]
     Indication: DEPRESSED MOOD
     Route: 048
     Dates: start: 20080509
  2. PROTELOS /01556702/ [Suspect]
     Indication: OSTEOARTHRITIS
     Route: 048
     Dates: start: 20080509
  3. PROTELOS /01556702/ [Suspect]
     Indication: OSTEOPENIA
     Route: 048
     Dates: start: 20080509
  4. ASPIRIN [Concomitant]
     Indication: DRUG USE FOR UNKNOWN INDICATION
     Dates: start: 20050517
  5. MOMETASONE FUROATE [Concomitant]
     Indication: DRUG USE FOR UNKNOWN INDICATION
     Dates: start: 20070323
  6. OMACOR [Concomitant]
     Indication: DRUG USE FOR UNKNOWN INDICATION
     Dates: start: 20080509
  7. ACETAMINOPHEN [Concomitant]
     Indication: DRUG USE FOR UNKNOWN INDICATION
     Dates: start: 20070227

REACTIONS (3)
  - DYSPNOEA [None]
  - HAEMATOMA [None]
  - PLEURAL EFFUSION [None]
